FAERS Safety Report 7442124-0 (Version None)
Quarter: 2011Q2

REPORT INFORMATION
  Report Type: 
  Country: None (occurrence: None)
  Receive Date: 20110428
  Receipt Date: 20110415
  Transmission Date: 20111010
  Serious: Yes (Other)
  Sender: FDA-Public Use
  Company Number: PHHY2011NL32549

PATIENT
  Sex: Male

DRUGS (8)
  1. LUCRIN [Concomitant]
  2. AVODART [Concomitant]
     Dosage: 0.5 MG, UNK
  3. ESTRACYT [Concomitant]
     Dosage: 140 MG, UNK
  4. ZOMETA [Suspect]
     Indication: PROSTATE CANCER METASTATIC
     Dosage: 4MG/5ML PER 28 DAYS, IN 20 MINUTES
     Dates: start: 20100413
  5. ZOMETA [Suspect]
     Dosage: 4MG/5ML PER 28 DAYS, IN 20 MINUTES
     Dates: start: 20110318
  6. ZOMETA [Suspect]
     Dosage: 4MG/5ML PER 28 DAYS, IN 20 MINUTES
     Dates: start: 20110415
  7. CASODEX [Concomitant]
     Dosage: 5450 MG, UNK
  8. PREDNISONE [Concomitant]
     Dosage: 5 MG, UNK

REACTIONS (1)
  - PROSTATIC SPECIFIC ANTIGEN INCREASED [None]
